FAERS Safety Report 6897262-8 (Version None)
Quarter: 2010Q3

REPORT INFORMATION
  Report Type: 
  Country: None (occurrence: None)
  Receive Date: 20100802
  Receipt Date: 20070512
  Transmission Date: 20110219
  Serious: No
  Sender: FDA-Public Use
  Company Number: US-PFIZER INC-2007028910

PATIENT
  Sex: Female
  Weight: 54.9 kg

DRUGS (5)
  1. LYRICA [Suspect]
     Indication: BURNING SENSATION
     Dates: start: 20070307
  2. MICARDIS [Concomitant]
     Indication: BLOOD PRESSURE ABNORMAL
  3. IBANDRONATE SODIUM [Concomitant]
     Indication: OSTEOPOROSIS
  4. CALCIUM [Concomitant]
  5. ASCORBIC ACID [Concomitant]

REACTIONS (5)
  - OROPHARYNGEAL PAIN [None]
  - PARANASAL SINUS HYPERSECRETION [None]
  - PHARYNGITIS [None]
  - RASH [None]
  - SINUS DISORDER [None]
